FAERS Safety Report 8406538-4 (Version None)
Quarter: 2012Q2

REPORT INFORMATION
  Report Type: 
  Country: None (occurrence: None)
  Receive Date: 20120604
  Receipt Date: 20120531
  Transmission Date: 20120825
  Serious: Yes (Hospitalization, Other)
  Sender: FDA-Public Use
  Company Number: US-AMGEN-USASP2011051064

PATIENT
  Sex: Female

DRUGS (1)
  1. ENBREL [Suspect]
     Indication: PSORIASIS
     Dosage: 50 MG, 2 TIMES/WK
     Dates: start: 20060908

REACTIONS (4)
  - FEMALE GENITAL TRACT FISTULA [None]
  - CROHN'S DISEASE [None]
  - HAEMOGLOBIN DECREASED [None]
  - ABDOMINAL ABSCESS [None]
